FAERS Safety Report 5977767-4 (Version None)
Quarter: 2008Q4

REPORT INFORMATION
  Report Type: 
  Country: None (occurrence: None)
  Receive Date: 20081203
  Receipt Date: 20081121
  Transmission Date: 20090506
  Serious: Yes (Hospitalization, Other)
  Sender: FDA-Public Use
  Company Number: FR-ELI_LILLY_AND_COMPANY-FR200811005098

PATIENT
  Sex: Female

DRUGS (10)
  1. UMULINE 30% REGULAR, 70% NPH [Suspect]
     Indication: DIABETES MELLITUS
     Dosage: 37 IU, DAILY (1/D)
     Route: 058
     Dates: end: 20081005
  2. GLUCOPHAGE [Concomitant]
     Dosage: 850 MG, 3/D
     Route: 048
     Dates: end: 20081005
  3. ORELOX [Concomitant]
     Dosage: UNK, UNKNOWN
     Route: 048
     Dates: start: 20080927, end: 20081003
  4. ELISOR [Concomitant]
     Dosage: 20 MG, 2/D
     Route: 065
  5. TAVANIC [Concomitant]
     Dosage: UNK, UNKNOWN
     Route: 048
     Dates: start: 20081004, end: 20081005
  6. JOSACINE [Concomitant]
     Dosage: UNK, UNKNOWN
     Route: 048
     Dates: start: 20080927, end: 20081003
  7. VENTOLIN [Concomitant]
     Dosage: 3 D/F, UNKNOWN
     Route: 055
     Dates: end: 20081005
  8. INIPOMP [Concomitant]
     Dosage: 40 MG, DAILY (1/D)
     Route: 048
  9. SINGULAIR [Concomitant]
     Dosage: 10 MG, DAILY (1/D)
     Route: 048
     Dates: end: 20081005
  10. TARDYFERON [Concomitant]
     Dosage: 80 MG, 2/D
     Route: 065

REACTIONS (3)
  - BRONCHITIS [None]
  - GENERAL PHYSICAL HEALTH DETERIORATION [None]
  - HYPOGLYCAEMIC COMA [None]
